FAERS Safety Report 20801412 (Version 1)
Quarter: 2022Q2

REPORT INFORMATION
  Report Type: Spontaneous
  Country: US (occurrence: None)
  Receive Date: 20220506
  Receipt Date: 20220506
  Transmission Date: 20220721
  Serious: Yes (Hospitalization)
  Sender: FDA-Public Use
  Company Number: None

PATIENT
  Sex: Female

DRUGS (9)
  1. SYMTUZA [Suspect]
     Active Substance: COBICISTAT\DARUNAVIR\EMTRICITABINE\TENOFOVIR ALAFENAMIDE
     Indication: HIV infection
     Dosage: OTHER QUANTITY : 80/150/200/10MG;?FREQUENCY : DAILY;?
     Route: 048
     Dates: start: 20201014
  2. proair nfa [Concomitant]
  3. ALBUTEROL INH SOLN UD [Concomitant]
  4. BENZONATATE [Concomitant]
  5. NICOTINE TRANSDERMAL SYS [Concomitant]
  6. FLUTICASONE PROPIONATE [Concomitant]
     Active Substance: FLUTICASONE PROPIONATE
  7. ACETAMINOPHEN [Concomitant]
     Active Substance: ACETAMINOPHEN
  8. DULOXETINE [Concomitant]
  9. SODIUM CHLORIDE [Concomitant]
     Active Substance: SODIUM CHLORIDE

REACTIONS (7)
  - Blindness [None]
  - Deafness bilateral [None]
  - Limb operation [None]
  - Limb operation [None]
  - Hysterectomy [None]
  - Neuralgia [None]
  - Dysphagia [None]
